FAERS Safety Report 4631882-6 (Version None)
Quarter: 2005Q2

REPORT INFORMATION
  Report Type: 
  Country: None (occurrence: None)
  Receive Date: 20050411
  Receipt Date: 20050404
  Transmission Date: 20051028
  Serious: Yes (Other)
  Sender: FDA-Public Use
  Company Number: US-BRISTOL-MYERS SQUIBB COMPANY-12926184

PATIENT
  Age: 55 Year
  Sex: Female

DRUGS (1)
  1. SERZONE [Suspect]
     Dates: start: 19981023, end: 20030221

REACTIONS (3)
  - DEATH [None]
  - LIVER DISORDER [None]
  - MALIGNANT MELANOMA OF SITES OTHER THAN SKIN [None]
